FAERS Safety Report 7508270-8 (Version None)
Quarter: 2011Q2

REPORT INFORMATION
  Report Type: 
  Country: None (occurrence: None)
  Receive Date: 20110527
  Receipt Date: 20110519
  Transmission Date: 20111010
  Serious: Yes (Hospitalization, Other)
  Sender: FDA-Public Use
  Company Number: FR-PFIZER INC-2011111961

PATIENT
  Age: 84 Year
  Sex: Female

DRUGS (6)
  1. CORDARONE [Suspect]
     Indication: ATRIAL FIBRILLATION
     Dosage: 200 MG, DAILY
     Route: 048
     Dates: start: 20110401, end: 20110505
  2. COUMADIN [Interacting]
     Indication: ATRIAL FIBRILLATION
     Dosage: 1 MG, DAILY
     Route: 048
     Dates: start: 20110401, end: 20110505
  3. ALDACTONE [Concomitant]
  4. LASIX [Concomitant]
  5. PREVISCAN [Concomitant]
     Dosage: UNK
     Dates: start: 20110324, end: 20110401
  6. BISOPROLOL FUMARATE [Concomitant]
     Dosage: UNK
     Dates: start: 20110324, end: 20110401

REACTIONS (4)
  - DRUG INTERACTION [None]
  - CYTOLYTIC HEPATITIS [None]
  - HYPONATRAEMIA [None]
  - INTERNATIONAL NORMALISED RATIO INCREASED [None]
